FAERS Safety Report 20742837 (Version 1)
Quarter: 2022Q2

REPORT INFORMATION
  Report Type: Spontaneous
  Country: JP (occurrence: JP)
  Receive Date: 20220424
  Receipt Date: 20220424
  Transmission Date: 20220720
  Serious: Yes (Other)
  Sender: FDA-Public Use
  Company Number: JP-NOVARTISPH-NVSJ2022JP089151

PATIENT
  Age: 72 Year
  Sex: Female

DRUGS (6)
  1. PAZOPANIB [Suspect]
     Active Substance: PAZOPANIB
     Indication: Renal cancer
     Dosage: UNK
     Route: 065
  2. IPILIMUMAB [Concomitant]
     Active Substance: IPILIMUMAB
     Indication: Renal cancer
     Dosage: UNK
     Route: 065
  3. NIVOLUMAB [Concomitant]
     Active Substance: NIVOLUMAB
     Indication: Renal cancer
     Dosage: UNK
     Route: 065
  4. AXITINIB [Concomitant]
     Active Substance: AXITINIB
     Indication: Renal cancer
     Dosage: UNK
     Route: 065
  5. CABOZANTINIB [Concomitant]
     Active Substance: CABOZANTINIB
     Indication: Renal cancer
     Dosage: UNK
     Route: 065
  6. SUNITINIB MALATE [Concomitant]
     Active Substance: SUNITINIB MALATE
     Indication: Renal cancer
     Dosage: UNK
     Route: 065

REACTIONS (1)
  - Drug-induced liver injury [Recovering/Resolving]
